FAERS Safety Report 21440745 (Version 1)
Quarter: 2022Q4

REPORT INFORMATION
  Report Type: Spontaneous
  Country: JP (occurrence: JP)
  Receive Date: 20221011
  Receipt Date: 20221011
  Transmission Date: 20230112
  Serious: Yes (Other)
  Sender: FDA-Public Use
  Company Number: JP-GUERBETG-JP-20220157

PATIENT
  Weight: 1.305 kg

DRUGS (1)
  1. LIPIODOL [Suspect]
     Active Substance: ETHIODIZED OIL
     Indication: Hysterosalpingogram
     Route: 065

REACTIONS (4)
  - Hypothyroidic goitre [Recovered/Resolved]
  - Low birth weight baby [Recovered/Resolved]
  - Tracheal compression [Recovered/Resolved]
  - Premature baby [Recovered/Resolved]
